FAERS Safety Report 10384406 (Version 1)
Quarter: 2014Q1

REPORT INFORMATION
  Report Type: Spontaneous
  Country: US (occurrence: None)
  Receive Date: 20140306
  Receipt Date: 20140306
  Transmission Date: 20141002
  Serious: Yes (Other)
  Sender: FDA-Public Use
  Company Number: 163-21880-13073776

PATIENT
  Age: 73 Year
  Sex: Male

DRUGS (9)
  1. REVLIMIB (LENALIDOMIDE) (15 MILLIGRAM, CAPSULES) [Suspect]
     Indication: PLASMA CELL MYELOMA
     Route: 048
     Dates: start: 201202
  2. HYDROCODONE BITARTRATE/HO [Concomitant]
  3. BABY ASPIRIN (ACETYLSALICYLIC ACID) [Concomitant]
  4. ZOMETA (ZOLEDRONIC ACID) [Concomitant]
  5. MULTIVITAMINS [Concomitant]
  6. NAPROXEN [Concomitant]
  7. MORPHINE SULFATE [Concomitant]
  8. CHONDROITIN SULFATE [Concomitant]
  9. LISINOPRIL [Concomitant]

REACTIONS (3)
  - Plasma cell myeloma recurrent [None]
  - Irritability [None]
  - Asthenia [None]
